FAERS Safety Report 22320498 (Version 1)
Quarter: 2023Q2

REPORT INFORMATION
  Report Type: Other
  Country: CA (occurrence: None)
  Receive Date: 20230515
  Receipt Date: 20230515
  Transmission Date: 20230721
  Serious: Yes (Other)
  Sender: FDA-Public Use
  Company Number: CA-ROCHE-3306589

PATIENT
  Age: 54 Year
  Sex: Female

DRUGS (3)
  1. OCREVUS [Suspect]
     Active Substance: OCRELIZUMAB
     Indication: Primary progressive multiple sclerosis
     Dosage: THEN 600 MG EVERY 6 MONTH
     Route: 042
     Dates: start: 20200130
  2. ZOPICLONE [Concomitant]
     Active Substance: ZOPICLONE
  3. SOLIFENACIN [Concomitant]
     Active Substance: SOLIFENACIN

REACTIONS (5)
  - Optic nerve injury [Not Recovered/Not Resolved]
  - Pain [Unknown]
  - Sleep disorder [Unknown]
  - Pollakiuria [Unknown]
  - Cataract [Unknown]

NARRATIVE: CASE EVENT DATE: 20221201
